FAERS Safety Report 19980734 (Version 2)
Quarter: 2021Q4

REPORT INFORMATION
  Report Type: Report from Study
  Country: US (occurrence: US)
  Receive Date: 20211022
  Receipt Date: 20211117
  Transmission Date: 20220303
  Serious: Yes (Death, Other)
  Sender: FDA-Public Use
  Company Number: US-ACADIA PHARMACEUTICALS INC.-ACA-2021-PIM-003489

PATIENT
  Sex: Male

DRUGS (10)
  1. NUPLAZID [Suspect]
     Active Substance: PIMAVANSERIN TARTRATE
     Indication: Hallucination
     Dosage: 34 MILLIGRAM, QD
     Route: 048
     Dates: start: 20210903, end: 202109
  2. CARBIDOPA\LEVODOPA [Concomitant]
     Active Substance: CARBIDOPA\LEVODOPA
  3. CLOPIDOGREL [Concomitant]
     Active Substance: CLOPIDOGREL BISULFATE
     Dosage: YEARS
  4. TRAZODONE [Concomitant]
     Active Substance: TRAZODONE HYDROCHLORIDE
     Dosage: MONTHS
  5. METOPROLOL [Concomitant]
     Active Substance: METOPROLOL
     Dosage: YEARS
  6. TAMSULOSIN [Concomitant]
     Active Substance: TAMSULOSIN
     Dosage: MONTHS
  7. SIMVASTATIN [Concomitant]
     Active Substance: SIMVASTATIN
     Dosage: YEARS
  8. PANTOPRAZOLE [Concomitant]
     Active Substance: PANTOPRAZOLE
     Dosage: MONTHS
  9. ASPIRIN [Concomitant]
     Active Substance: ASPIRIN
     Dosage: YEARS
  10. LORAZEPAM [Concomitant]
     Active Substance: LORAZEPAM
     Dosage: PRN

REACTIONS (1)
  - Dementia [Recovered/Resolved]
